FAERS Safety Report 25399315 (Version 2)
Quarter: 2025Q3

REPORT INFORMATION
  Report Type: Spontaneous
  Country: US (occurrence: US)
  Receive Date: 20250605
  Receipt Date: 20250701
  Transmission Date: 20251020
  Serious: No
  Sender: NOVARTIS
  Company Number: US-002147023-NVSC2025US089538

PATIENT
  Sex: Male

DRUGS (1)
  1. PLUVICTO [Suspect]
     Active Substance: LUTETIUM LU-177 VIPIVOTIDE TETRAXETAN
     Indication: Product used for unknown indication
     Route: 065
     Dates: start: 20250105, end: 20250306

REACTIONS (6)
  - General physical health deterioration [Unknown]
  - Weight decreased [Unknown]
  - Nausea [Unknown]
  - Lethargy [Unknown]
  - Decreased appetite [Unknown]
  - Skin lesion [Unknown]
